FAERS Safety Report 16804042 (Version 1)
Quarter: 2019Q3

REPORT INFORMATION
  Report Type: Spontaneous
  Country: US (occurrence: US)
  Receive Date: 20190723
  Receipt Date: 20190723
  Transmission Date: 20191005
  Serious: No
  Sender: FDA-Public Use
  Company Number: None

PATIENT
  Age: 73 Year
  Sex: Male

DRUGS (1)
  1. IBRUTINIB [Suspect]
     Active Substance: IBRUTINIB
     Indication: LUNG NEOPLASM MALIGNANT
     Dates: start: 20181024, end: 20190415

REACTIONS (2)
  - Haemorrhage [None]
  - Haemothorax [None]

NARRATIVE: CASE EVENT DATE: 20190319
